FAERS Safety Report 23111283 (Version 1)
Quarter: 2023Q4

REPORT INFORMATION
  Report Type: Spontaneous
  Country: JP (occurrence: JP)
  Receive Date: 20231026
  Receipt Date: 20231026
  Transmission Date: 20240109
  Serious: No
  Sender: FDA-Public Use
  Company Number: JP-JAZZ PHARMACEUTICALS-2023-JP-011245

PATIENT

DRUGS (1)
  1. DEFITELIO [Suspect]
     Active Substance: DEFIBROTIDE SODIUM
     Indication: Venoocclusive liver disease
     Dosage: 200 MILLIGRAM
     Route: 042

REACTIONS (3)
  - Blood beta-D-glucan increased [Unknown]
  - Aspergillus test positive [Unknown]
  - Cryptococcus test positive [Unknown]
